FAERS Safety Report 22660714 (Version 1)
Quarter: 2023Q2

REPORT INFORMATION
  Report Type: Spontaneous
  Country: US (occurrence: US)
  Receive Date: 20230630
  Receipt Date: 20230630
  Transmission Date: 20230721
  Serious: No
  Sender: FDA-Public Use
  Company Number: US-JAZZ PHARMACEUTICALS-2022-US-038300

PATIENT
  Sex: Male

DRUGS (1)
  1. EPIDIOLEX [Suspect]
     Active Substance: CANNABIDIOL
     Indication: Seizure
     Dosage: 4.4 MILLILITER, BID
     Route: 048
     Dates: start: 2020

REACTIONS (3)
  - Somnolence [Unknown]
  - Platelet count decreased [Unknown]
  - Tremor [Unknown]
